FAERS Safety Report 14500122 (Version 1)
Quarter: 2018Q1

REPORT INFORMATION
  Report Type: Not Available
  Country: US (occurrence: US)
  Receive Date: 20180207
  Receipt Date: 20180207
  Transmission Date: 20180509
  Serious: No
  Sender: FDA-Public Use
  Company Number: US-FOUNDATIONCONSUMERHC-2017-US-014529

PATIENT
  Age: 19 Year
  Sex: Female
  Weight: 48.99 kg

DRUGS (3)
  1. AMOXICILLIN. [Suspect]
     Active Substance: AMOXICILLIN
     Dosage: UNSPECIFIED DOSE
     Dates: start: 201712
  2. AFTERA [Suspect]
     Active Substance: LEVONORGESTREL
     Dosage: 1 PILL
     Route: 048
     Dates: start: 20171203, end: 20171203
  3. PLAN B ONE-STEP [Suspect]
     Active Substance: LEVONORGESTREL
     Dosage: 1 PILL
     Route: 048
     Dates: start: 20171028, end: 20171028

REACTIONS (3)
  - Menstruation delayed [Unknown]
  - Vaginal haemorrhage [Recovered/Resolved]
  - Abdominal pain [Unknown]

NARRATIVE: CASE EVENT DATE: 20171104
